FAERS Safety Report 23230043 (Version 1)
Quarter: 2023Q4

REPORT INFORMATION
  Report Type: Spontaneous
  Country: US (occurrence: US)
  Receive Date: 20231127
  Receipt Date: 20231127
  Transmission Date: 20240110
  Serious: Yes (Hospitalization)
  Sender: FDA-Public Use
  Company Number: US-ADAREPHARM-2023-US-000060

PATIENT
  Age: 40 Year
  Sex: Female

DRUGS (5)
  1. FUROSEMIDE [Concomitant]
     Active Substance: FUROSEMIDE
     Indication: Pleural effusion
  2. PROPRANOLOL [Suspect]
     Active Substance: PROPRANOLOL HYDROCHLORIDE
     Indication: Thyrotoxic crisis
     Dosage: MAXIMUM DOSES
  3. PROPYLTHIOURACIL [Concomitant]
     Active Substance: PROPYLTHIOURACIL
     Indication: Thyrotoxic crisis
     Dosage: MAXIMUM DOSES
  4. HYDROCORTISONE [Concomitant]
     Active Substance: HYDROCORTISONE
     Indication: Thyrotoxic crisis
     Dosage: MAXIMUM DOSES
  5. POTASSIUM IODIDE [Concomitant]
     Active Substance: POTASSIUM IODIDE
     Indication: Thyrotoxic crisis
     Dosage: SATURATED SOLUTION

REACTIONS (8)
  - Tri-iodothyronine free increased [Recovered/Resolved]
  - Maternal exposure during pregnancy [Recovered/Resolved]
  - Mental status changes [Unknown]
  - Caesarean section [Recovered/Resolved]
  - Premature baby [Recovered/Resolved]
  - Confusional state [Unknown]
  - Liver function test abnormal [Unknown]
  - Thyroxine free increased [Recovered/Resolved]
